FAERS Safety Report 17206133 (Version 1)
Quarter: 2020Q1

REPORT INFORMATION
  Report Type: Spontaneous
  Country: US (occurrence: US)
  Receive Date: 20191226
  Receipt Date: 20191226
  Transmission Date: 20200409
  Serious: Yes (Other)
  Sender: FDA-Public Use
  Company Number: None

PATIENT
  Age: 71 Year
  Sex: Male
  Weight: 49.4 kg

DRUGS (3)
  1. ANDEXXA [Suspect]
     Active Substance: ANDEXANET ALFA
  2. FENTANYL. [Concomitant]
     Active Substance: FENTANYL
  3. PORPOFOL [Concomitant]

REACTIONS (3)
  - Acute myocardial infarction [None]
  - Packed red blood cell transfusion [None]
  - Mental impairment [None]

NARRATIVE: CASE EVENT DATE: 20191129
